FAERS Safety Report 10209361 (Version 1)
Quarter: 2014Q2

REPORT INFORMATION
  Report Type: Other
  Country: AU (occurrence: AU)
  Receive Date: 20140531
  Receipt Date: 20140531
  Transmission Date: 20141212
  Serious: Yes (Hospitalization)
  Sender: FDA-Public Use
  Company Number: AU-LUPIN PHARMACEUTICALS INC.-2013-01462

PATIENT
  Age: 20 Month
  Sex: Male
  Weight: 11 kg

DRUGS (3)
  1. LAMOTRIGINE [Suspect]
     Indication: PRODUCT USED FOR UNKNOWN INDICATION
     Route: 065
  2. PAROXETINE [Concomitant]
     Indication: PRODUCT USED FOR UNKNOWN INDICATION
     Route: 065
  3. BUPROPION [Concomitant]
     Indication: PRODUCT USED FOR UNKNOWN INDICATION
     Route: 065

REACTIONS (7)
  - Accidental exposure to product [Recovered/Resolved]
  - Accidental overdose [Recovered/Resolved]
  - Depressed level of consciousness [Recovered/Resolved]
  - Limb malformation [Recovered/Resolved]
  - Anxiety [Recovered/Resolved]
  - Agitation [Recovered/Resolved]
  - Flushing [Recovered/Resolved]
